FAERS Safety Report 10252739 (Version 1)
Quarter: 2014Q2

REPORT INFORMATION
  Report Type: Spontaneous
  Country: GB (occurrence: GB)
  Receive Date: 20140623
  Receipt Date: 20140623
  Transmission Date: 20141212
  Serious: Yes (Life-Threatening)
  Sender: FDA-Public Use
  Company Number: GB-ACTAVIS-2014-13075

PATIENT
  Age: 70 Year
  Sex: Male
  Weight: 91 kg

DRUGS (1)
  1. DOXYCYCLINE HYCLATE (UNKNOWN) [Suspect]
     Indication: ROSACEA
     Dosage: 100 MG, DAILY
     Route: 048
     Dates: start: 20080603, end: 20140506

REACTIONS (1)
  - Drug-induced liver injury [Recovered/Resolved with Sequelae]
